FAERS Safety Report 10048112 (Version 1)
Quarter: 2014Q1

REPORT INFORMATION
  Report Type: Spontaneous
  Country: US (occurrence: None)
  Receive Date: 20140306
  Receipt Date: 20140306
  Transmission Date: 20141002
  Serious: Yes (Hospitalization)
  Sender: FDA-Public Use
  Company Number: 163-21880-13054206

PATIENT
  Age: 71 Year
  Sex: Male
  Weight: 97.98 kg

DRUGS (12)
  1. REVLIMID (LENALIDOMIDE) (25 MILLIGRAM, CAPSULES) [Suspect]
     Indication: PLASMA CELL MYELOMA
     Dosage: 25 MG, 21 IN 21 D, PO  04/27/2013 - UNKNOWN THERAPY DATESS
     Route: 048
     Dates: start: 20130427
  2. AMARYL (GLIMEPIRIDE) [Concomitant]
  3. ASA  (ACETYLSALICYLIC ACID) [Concomitant]
  4. DILCOR XR (NIFEDIPINE) [Concomitant]
  5. LANTUS (INSULIN GLARGINE) [Concomitant]
  6. SYNTHROID (LEVOTHYROXINE SODIUM) [Concomitant]
  7. LOVASTATIN (LOVASTATIN) [Concomitant]
  8. BENADRYL (DIPHENHYDRAMINE HYDROCHLORIDE) [Concomitant]
  9. ULTRAM (TRAMADOL HYDROCHLORIDE) [Concomitant]
  10. ROBAXIN (METHOCARBAMOL) [Concomitant]
  11. DECADRON (DEXAMETHASONE) [Concomitant]
  12. VITAMIN D2 (ERGOCALCIFEROL) [Concomitant]

REACTIONS (1)
  - Transient ischaemic attack [None]
